FAERS Safety Report 4992221-4 (Version None)
Quarter: 2006Q2

REPORT INFORMATION
  Report Type: 
  Country: None (occurrence: None)
  Receive Date: 20060502
  Receipt Date: 20060424
  Transmission Date: 20061013
  Serious: Yes (Death)
  Sender: FDA-Public Use
  Company Number: 2006S1002240

PATIENT
  Age: 50 Year
  Sex: Female
  Weight: 61.2356 kg

DRUGS (20)
  1. FENTANYL TRANSDERMAL SYSTEM [Suspect]
     Indication: PAIN
     Dosage: 100 UG/HR; Q3D; TRANS
     Dates: start: 20060312, end: 20060314
  2. FENTANYL TRANSDERMAL SYSTEM [Suspect]
     Indication: PAIN
     Dosage: 100 UG/HR; Q3D; TRANS
     Dates: start: 20050201
  3. GUAIFENESIN [Concomitant]
  4. NIFEDIPINE [Concomitant]
  5. PREDNISONE TAB [Concomitant]
  6. BUDESONIDE [Concomitant]
  7. AMITRIPTYLINE HYDROCHLORIDE [Concomitant]
  8. CIPROFLOXACIN [Concomitant]
  9. INSULIN ASPART [Concomitant]
  10. WARFARIN SODIUM [Concomitant]
  11. FLUTICASONE PROPIONATE [Concomitant]
  12. POTASSIUM CHLORIDE [Concomitant]
  13. PSEUDOEPHEDRINE HYDROCHLORIDE/TRIPROLIDINE HYDROCHLORIDE [Concomitant]
  14. OXYCODONE/PARACETAMOL [Concomitant]
  15. FUROSEMIDE [Concomitant]
  16. IPRATROPIUM BROMIDE/SALBUTAMOL SULFATE [Concomitant]
  17. LORAZEPAM [Concomitant]
  18. TIOTROPIUM BROMIDE [Concomitant]
  19. MAGNESIUM CHLORIDE ANHYDROUS [Concomitant]
  20. FAMOTIDINE [Concomitant]

REACTIONS (2)
  - DIZZINESS [None]
  - LOSS OF CONSCIOUSNESS [None]
